FAERS Safety Report 7999755 (Version 6)
Quarter: 2012Q4

REPORT INFORMATION
  Report Type: 
  Country: US (occurrence: US)
  Receive Date: 20110621
  Receipt Date: 20121217
  Transmission Date: 20130627
  Serious: Yes (Life-Threatening, Hospitalization, Other)
  Sender: FDA-Public Use
  Company Number: US-ACTELION-A-NJ2010-34536

PATIENT
  Age: 80 Year
  Sex: Female

DRUGS (3)
  1. TRACLEER [Suspect]
     Indication: PULMONARY ARTERIAL HYPERTENSION
     Dosage: 125 mg, bid
     Route: 048
  2. TRACLEER [Suspect]
     Dosage: UNK
     Route: 048
     Dates: start: 200211
  3. COUMADIN [Concomitant]

REACTIONS (8)
  - Cardiac pacemaker insertion [Recovering/Resolving]
  - Atrial fibrillation [Recovered/Resolved]
  - Arthritis [Not Recovered/Not Resolved]
  - Fall [Recovered/Resolved]
  - Heart rate decreased [Unknown]
  - Heart rate irregular [Unknown]
  - Dizziness [Unknown]
  - Oedema peripheral [Unknown]
